FAERS Safety Report 8233937-6 (Version None)
Quarter: 2012Q1

REPORT INFORMATION
  Report Type: 
  Country: None (occurrence: None)
  Receive Date: 20120322
  Receipt Date: 20120313
  Transmission Date: 20120608
  Serious: Yes (Life-Threatening, Other)
  Sender: FDA-Public Use
  Company Number: 2012-025217

PATIENT
  Age: 50 Year
  Sex: Female

DRUGS (3)
  1. ASPIRIN [Suspect]
     Indication: ANTIPLATELET THERAPY
     Dosage: 325 MG, ONCE  : 325 MG, DAILY
  2. HEPARIN [Suspect]
     Dosage: INTRAVENOUS
     Route: 042
  3. CLOPIDOGREL [Suspect]
     Indication: ANTIPLATELET THERAPY
     Dosage: 600 MG, ONCE : 75 MG, DAILY

REACTIONS (11)
  - HAEMODYNAMIC INSTABILITY [None]
  - SUBARACHNOID HAEMORRHAGE [None]
  - GRAND MAL CONVULSION [None]
  - ARTERIAL HAEMORRHAGE [None]
  - APHASIA [None]
  - HEMIPLEGIA [None]
  - COUGH [None]
  - CEREBRAL INFARCTION [None]
  - THROMBOSIS IN DEVICE [None]
  - BLOOD PRESSURE INCREASED [None]
  - INTRAVENTRICULAR HAEMORRHAGE [None]
